FAERS Safety Report 16266502 (Version 3)
Quarter: 2019Q3

REPORT INFORMATION
  Report Type: Report from Study
  Country: US (occurrence: US)
  Receive Date: 20190502
  Receipt Date: 20190927
  Transmission Date: 20191004
  Serious: Yes (Other)
  Sender: FDA-Public Use
  Company Number: PHEH2019US017856

PATIENT
  Sex: Male
  Weight: 77 kg

DRUGS (2)
  1. ILARIS [Suspect]
     Active Substance: CANAKINUMAB
     Indication: STILL^S DISEASE
     Dosage: 150 MG, Q4W
     Route: 058
  2. ILARIS [Suspect]
     Active Substance: CANAKINUMAB
     Dosage: 300 MG, Q4W (EVERY 28 DAYS)
     Route: 058
     Dates: start: 20190823

REACTIONS (8)
  - Neck pain [Unknown]
  - Inflammation [Unknown]
  - Bone pain [Unknown]
  - Petechiae [Unknown]
  - Arthralgia [Unknown]
  - Still^s disease [Unknown]
  - Condition aggravated [Unknown]
  - Rash [Unknown]
